FAERS Safety Report 7315374 (Version 9)
Quarter: 2013Q1

REPORT INFORMATION
  Report Type: Spontaneous
  Country: US (occurrence: US)
  Receive Date: 20100311
  Receipt Date: 20130207
  Transmission Date: 20140127
  Serious: Yes (Life-Threatening, Hospitalization, Other)
  Sender: FDA-Public Use
  Company Number: US-JNJFOC-20091004215

PATIENT
  Sex: Female
  Weight: 68.04 kg

DRUGS (4)
  1. REMICADE [Suspect]
     Indication: CROHN^S DISEASE
     Route: 042
     Dates: start: 2006, end: 20090801
  2. IMURAN [Suspect]
     Indication: CROHN^S DISEASE
     Dates: end: 200812
  3. IMURAN [Suspect]
     Indication: CROHN^S DISEASE
     Dates: start: 200906, end: 200908
  4. VITAMIN [Concomitant]

REACTIONS (2)
  - Hepatosplenic T-cell lymphoma [Recovering/Resolving]
  - Headache [Unknown]
